FAERS Safety Report 15823809 (Version 1)
Quarter: 2019Q1

REPORT INFORMATION
  Report Type: Spontaneous
  Country: US (occurrence: US)
  Receive Date: 20190114
  Receipt Date: 20190114
  Transmission Date: 20190417
  Serious: No
  Sender: FDA-Public Use
  Company Number: US-PFIZER INC-2019015826

PATIENT
  Age: 15 Year
  Sex: Male

DRUGS (1)
  1. GENOTROPIN [Suspect]
     Active Substance: SOMATROPIN
     Dosage: 1.6 MG, DAILY
     Dates: start: 20170629

REACTIONS (8)
  - Blood glucose increased [Unknown]
  - Anion gap increased [Unknown]
  - Blood creatinine decreased [Not Recovered/Not Resolved]
  - Injection site discomfort [Unknown]
  - Blood osmolarity decreased [Unknown]
  - Thyroxine free decreased [Unknown]
  - Insulin-like growth factor increased [Unknown]
  - Blood insulin increased [Unknown]

NARRATIVE: CASE EVENT DATE: 20171101
